FAERS Safety Report 10730433 (Version 2)
Quarter: 2015Q1

REPORT INFORMATION
  Report Type: Report from Study
  Country: DE (occurrence: DE)
  Receive Date: 20150122
  Receipt Date: 20150226
  Transmission Date: 20150721
  Serious: Yes (Other)
  Sender: FDA-Public Use
  Company Number: PHHY2015DE006690

PATIENT
  Sex: Male

DRUGS (8)
  1. CARBAMAZEPINE. [Concomitant]
     Active Substance: CARBAMAZEPINE
     Indication: PAIN
     Dosage: 200 MG, (2X1/2)
     Route: 048
     Dates: end: 20130929
  2. LYRICA [Concomitant]
     Active Substance: PREGABALIN
     Dosage: 50 MG, BID
     Route: 048
     Dates: start: 20141014
  3. CARBAMAZEPINE. [Concomitant]
     Active Substance: CARBAMAZEPINE
     Dosage: 100 MG, QD
     Route: 048
     Dates: start: 20130930, end: 20131016
  4. LYRICA [Concomitant]
     Active Substance: PREGABALIN
     Dosage: 25 MG, TID
     Route: 048
     Dates: start: 20131108, end: 20131127
  5. LYRICA [Concomitant]
     Active Substance: PREGABALIN
     Dosage: 25 MG, BID
     Route: 048
     Dates: start: 20131128, end: 20141013
  6. FAMPYRA [Concomitant]
     Active Substance: DALFAMPRIDINE
     Indication: MULTIPLE SCLEROSIS
     Dosage: 10 MG, BID
     Route: 048
     Dates: start: 20121006
  7. LYRICA [Concomitant]
     Active Substance: PREGABALIN
     Indication: PAIN
     Dosage: 25 MG, BID
     Route: 048
     Dates: start: 20131024, end: 20131107
  8. GILENYA [Suspect]
     Active Substance: FINGOLIMOD HYDROCHLORIDE
     Indication: MULTIPLE SCLEROSIS
     Dosage: 0.5 MG, QD
     Route: 048
     Dates: start: 20130710

REACTIONS (2)
  - Basal cell carcinoma [Recovered/Resolved]
  - Haemorrhage [Unknown]

NARRATIVE: CASE EVENT DATE: 201408
